FAERS Safety Report 7183861-5 (Version None)
Quarter: 2010Q4

REPORT INFORMATION
  Report Type: 
  Country: None (occurrence: None)
  Receive Date: 20101210
  Receipt Date: 20101130
  Transmission Date: 20110411
  Serious: Yes (Hospitalization)
  Sender: FDA-Public Use
  Company Number: 2010MA004912

PATIENT
  Age: 53 Year
  Sex: Female

DRUGS (7)
  1. NAPROXEN [Suspect]
     Indication: PAIN
     Dosage: 250 MG; QID; PO
     Route: 048
     Dates: start: 20101109, end: 20101113
  2. BENDROFLUMETHIAZIDE [Concomitant]
  3. ONDANSETRON [Concomitant]
  4. LEVOTHYROXINE SODIUM [Concomitant]
  5. LIQUIFILM TEARS [Concomitant]
  6. CLARITHROMYCIN [Concomitant]
  7. PENICILLIN [Concomitant]

REACTIONS (1)
  - STEVENS-JOHNSON SYNDROME [None]
